FAERS Safety Report 5973000-8 (Version None)
Quarter: 2008Q4

REPORT INFORMATION
  Report Type: 
  Country: None (occurrence: None)
  Receive Date: 20081201
  Receipt Date: 20081125
  Transmission Date: 20090506
  Serious: Yes (Other)
  Sender: FDA-Public Use
  Company Number: PHEH2008US10632

PATIENT
  Sex: Male

DRUGS (1)
  1. TEKTURNA [Suspect]
     Dosage: 150 MG, UNK

REACTIONS (4)
  - FATIGUE [None]
  - HEART RATE DECREASED [None]
  - HYPERTENSION [None]
  - MUSCULAR WEAKNESS [None]
